FAERS Safety Report 5793076-0 (Version None)
Quarter: 2008Q2

REPORT INFORMATION
  Report Type: 
  Country: None (occurrence: None)
  Receive Date: 20080627
  Receipt Date: 20080617
  Transmission Date: 20081010
  Serious: Yes (Other)
  Sender: FDA-Public Use
  Company Number: FR-JNJFOC-20080603789

PATIENT
  Sex: Female

DRUGS (2)
  1. PREZISTA [Suspect]
     Indication: HIV INFECTION
     Route: 048
  2. ANTIRETROVIRAL THERAPY [Concomitant]
     Indication: HIV INFECTION

REACTIONS (2)
  - ANAEMIA [None]
  - THROMBOCYTOPENIA [None]
